FAERS Safety Report 17120107 (Version 2)
Quarter: 2020Q1

REPORT INFORMATION
  Report Type: Spontaneous
  Country: GB (occurrence: GB)
  Receive Date: 20191206
  Receipt Date: 20200107
  Transmission Date: 20200409
  Serious: Yes (Hospitalization, Disabling, Other)
  Sender: FDA-Public Use
  Company Number: NVSC2019GB051705

PATIENT
  Age: 64 Year
  Sex: Male
  Weight: 80 kg

DRUGS (9)
  1. PREDNISOLONE. [Concomitant]
     Active Substance: PREDNISOLONE
     Indication: ABDOMINAL PAIN
     Route: 065
  2. PREDNISOLONE. [Concomitant]
     Active Substance: PREDNISOLONE
     Indication: GASTROINTESTINAL DISORDER CONGENITAL
  3. AMOXICILLIN. [Suspect]
     Active Substance: AMOXICILLIN
     Indication: SINUSITIS
     Dosage: ONE WEEK 500 MG THREE TIMES A DAY.
     Route: 065
     Dates: start: 20190823, end: 20190829
  4. DOXYCYCLINE. [Suspect]
     Active Substance: DOXYCYCLINE
     Indication: SINUSITIS
     Dosage: 2X100 MG ON THE FIRST DAY, THEN 1X100 MG EACH DAY UNTIL THE COURSE IS FINISHED.
     Route: 048
     Dates: start: 20190906, end: 20190906
  5. DOXYCYCLINE. [Suspect]
     Active Substance: DOXYCYCLINE
     Dosage: 2X100 MG ON THE FIRST DAY, THEN 1X100 MG EACH DAY UNTIL THE COURSE IS FINISHED.
     Route: 048
     Dates: start: 20190907, end: 20190913
  6. FEXOFENADINE [Concomitant]
     Active Substance: FEXOFENADINE HYDROCHLORIDE
     Indication: ABDOMINAL PAIN
  7. MACROGOL [Concomitant]
     Active Substance: POLYETHYLENE GLYCOLS
     Indication: ABDOMINAL PAIN
  8. MACROGOL [Concomitant]
     Active Substance: POLYETHYLENE GLYCOLS
     Indication: GASTROINTESTINAL DISORDER CONGENITAL
     Route: 065
  9. FEXOFENADINE [Concomitant]
     Active Substance: FEXOFENADINE HYDROCHLORIDE
     Indication: GASTROINTESTINAL DISORDER CONGENITAL
     Route: 065

REACTIONS (22)
  - Enteritis [Recovered/Resolved]
  - Mood swings [Recovered/Resolved with Sequelae]
  - Exercise tolerance decreased [Recovered/Resolved with Sequelae]
  - Asthenia [Recovered/Resolved with Sequelae]
  - Dyspepsia [Unknown]
  - Sleep disorder [Recovered/Resolved with Sequelae]
  - Decreased appetite [Recovered/Resolved]
  - Vision blurred [Recovered/Resolved with Sequelae]
  - Insomnia [Unknown]
  - Constipation [Unknown]
  - Abdominal discomfort [Unknown]
  - Mood altered [Recovered/Resolved]
  - Gastrointestinal sounds abnormal [Unknown]
  - Fatigue [Recovered/Resolved]
  - Sleep disorder [Recovered/Resolved]
  - Flatulence [Unknown]
  - Fatigue [Unknown]
  - Gastrointestinal pain [Unknown]
  - Abdominal pain upper [Recovered/Resolved]
  - Irritability [Unknown]
  - Disturbance in attention [Recovered/Resolved with Sequelae]
  - Headache [Recovered/Resolved with Sequelae]

NARRATIVE: CASE EVENT DATE: 20190909
